FAERS Safety Report 16595731 (Version 3)
Quarter: 2020Q1

REPORT INFORMATION
  Report Type: Spontaneous
  Country: FR (occurrence: FR)
  Receive Date: 20190719
  Receipt Date: 20200310
  Transmission Date: 20200409
  Serious: Yes (Hospitalization)
  Sender: FDA-Public Use
  Company Number: FR-AUROBINDO-AUR-APL-2019-041101

PATIENT
  Age: 72 Year
  Sex: Female
  Weight: 84 kg

DRUGS (13)
  1. TELMISARTAN. [Concomitant]
     Active Substance: TELMISARTAN
     Indication: PRODUCT USED FOR UNKNOWN INDICATION
     Dosage: 80 MILLIGRAM, ONCE A DAY
     Route: 048
     Dates: end: 20190301
  2. ELDISINE [Concomitant]
     Active Substance: VINDESINE SULFATE
     Indication: NODAL MARGINAL ZONE B-CELL LYMPHOMA STAGE IV
     Dosage: 5.7 MILLIGRAM, CYCLICAL
     Route: 041
     Dates: start: 20190122
  3. ENDOXAN [Concomitant]
     Active Substance: CYCLOPHOSPHAMIDE
     Indication: NODAL MARGINAL ZONE B-CELL LYMPHOMA STAGE IV
     Dosage: 1420 MILLIGRAM, CYCLICAL
     Route: 041
     Dates: start: 20190122
  4. LEDERFOLINE [Suspect]
     Active Substance: LEUCOVORIN CALCIUM
     Indication: PROPHYLAXIS
     Dosage: 1 DOSAGE FORM, 1 SECOND
     Route: 048
  5. SOLUPRED [Concomitant]
     Indication: NODAL MARGINAL ZONE B-CELL LYMPHOMA STAGE IV
     Dosage: 450 MILLIGRAM (45MGX2 FROM J1 TO J5)
     Route: 048
     Dates: start: 20190122
  6. AMOXICILLIN. [Suspect]
     Active Substance: AMOXICILLIN
     Indication: PYREXIA
     Dosage: UNK
     Route: 048
     Dates: start: 20190203
  7. CLARITHROMYCIN. [Suspect]
     Active Substance: CLARITHROMYCIN
     Indication: PYREXIA
     Dosage: UNK
     Route: 048
     Dates: start: 20190203
  8. BACTRIM [Suspect]
     Active Substance: SULFAMETHOXAZOLE\TRIMETHOPRIM
     Indication: PROPHYLAXIS
     Dosage: 3 DOSAGE FORM, EVERY WEEK
     Route: 048
     Dates: start: 20190123, end: 20190304
  9. ALLOPURINOL. [Suspect]
     Active Substance: ALLOPURINOL
     Indication: PROPHYLAXIS
     Dosage: 300 MILLIGRAM, ONCE A DAY
     Route: 048
     Dates: start: 20190123
  10. RULID [Suspect]
     Active Substance: ROXITHROMYCIN
     Indication: FEBRILE NEUTROPENIA
     Dosage: UNK
     Route: 048
     Dates: start: 20190213
  11. KARDEGIC [Concomitant]
     Active Substance: ASPIRIN DL-LYSINE
     Indication: PRODUCT USED FOR UNKNOWN INDICATION
     Dosage: 1 DOSAGE FORM, ONCE A DAY
     Route: 048
     Dates: end: 20190301
  12. TRUXIMA [Suspect]
     Active Substance: RITUXIMAB-ABBS
     Indication: NODAL MARGINAL ZONE B-CELL LYMPHOMA STAGE IV
     Dosage: 700 MILLIGRAM, UNK
     Route: 042
     Dates: start: 20190122
  13. UVEDOSE [Concomitant]
     Active Substance: CHOLECALCIFEROL
     Indication: VITAMIN SUPPLEMENTATION
     Dosage: 1 DOSAGE FORM, 3 MONTH
     Route: 048
     Dates: end: 20190301

REACTIONS (3)
  - Rash maculo-papular [Recovered/Resolved]
  - Oedema peripheral [Recovered/Resolved]
  - Eosinophilia [Recovered/Resolved]

NARRATIVE: CASE EVENT DATE: 20190217
